FAERS Safety Report 9466842 (Version 6)
Quarter: 2017Q1

REPORT INFORMATION
  Report Type: Spontaneous
  Country: US (occurrence: US)
  Receive Date: 20130820
  Receipt Date: 20170206
  Transmission Date: 20170429
  Serious: Yes (Hospitalization, Disabling, Other)
  Sender: FDA-Public Use
  Company Number: US-009507513-1308USA007532

PATIENT
  Sex: Female
  Weight: 58.5 kg

DRUGS (3)
  1. ALENDRONATE SODIUM. [Suspect]
     Active Substance: ALENDRONATE SODIUM
     Indication: OSTEOPOROSIS PROPHYLAXIS
     Dosage: 70 MG, QW
     Route: 048
     Dates: start: 20080227, end: 200806
  2. FOSAMAX [Suspect]
     Active Substance: ALENDRONATE SODIUM
     Indication: OSTEOPOROSIS PROPHYLAXIS
     Dosage: 70 MG, QW
     Route: 048
     Dates: start: 20010406, end: 20100312
  3. METOPROLOL TARTRATE. [Concomitant]
     Active Substance: METOPROLOL TARTRATE
     Indication: ESSENTIAL HYPERTENSION
     Dosage: 25 MG, QD
     Dates: start: 1993

REACTIONS (33)
  - Craniocerebral injury [Unknown]
  - Skin irritation [Unknown]
  - Blood parathyroid hormone increased [Unknown]
  - Fatigue [Unknown]
  - Eyelid operation [Unknown]
  - Vitamin B12 deficiency [Recovered/Resolved]
  - Eyelid ptosis [Recovered/Resolved]
  - Osteoporosis [Unknown]
  - Foot fracture [Unknown]
  - Presyncope [Unknown]
  - Osteopenia [Unknown]
  - Arthralgia [Unknown]
  - Intramedullary rod insertion [Unknown]
  - Infusion [Unknown]
  - Joint effusion [Unknown]
  - Syncope [Unknown]
  - Vitamin D deficiency [Unknown]
  - Fall [Unknown]
  - Femur fracture [Not Recovered/Not Resolved]
  - Limb operation [Unknown]
  - Depression [Unknown]
  - Endocrine disorder [Unknown]
  - Plasma cell myeloma [Unknown]
  - Cardiac valve disease [Unknown]
  - Hyperlipidaemia [Unknown]
  - Myalgia [Unknown]
  - Intramedullary rod insertion [Unknown]
  - Ankle fracture [Recovering/Resolving]
  - Low turnover osteopathy [Not Recovered/Not Resolved]
  - Hyponatraemia [Unknown]
  - Dehydration [Unknown]
  - Limb injury [Unknown]
  - Gastrooesophageal reflux disease [Unknown]

NARRATIVE: CASE EVENT DATE: 2005
